FAERS Safety Report 10399137 (Version 1)
Quarter: 2014Q3

REPORT INFORMATION
  Report Type: Spontaneous
  Country: US (occurrence: None)
  Receive Date: 20140818
  Receipt Date: 20140818
  Transmission Date: 20150326
  Serious: No
  Sender: FDA-Public Use
  Company Number: None

PATIENT
  Age: 52 Year
  Sex: Female

DRUGS (1)
  1. NASONEX [Suspect]
     Active Substance: MOMETASONE FUROATE
     Dosage: 2 SPRAYS?ONCE DAILY?INHALATION
     Route: 055
     Dates: start: 20140813, end: 20140816

REACTIONS (5)
  - Nausea [None]
  - Insomnia [None]
  - Myalgia [None]
  - Headache [None]
  - Abdominal distension [None]

NARRATIVE: CASE EVENT DATE: 20140817
